FAERS Safety Report 5141035-3 (Version None)
Quarter: 2006Q4

REPORT INFORMATION
  Report Type: 
  Country: None (occurrence: None)
  Receive Date: 20061026
  Receipt Date: 20061012
  Transmission Date: 20070319
  Serious: Yes (Life-Threatening, Hospitalization)
  Sender: FDA-Public Use
  Company Number: 231055

PATIENT
  Age: 40 Year
  Sex: Male

DRUGS (7)
  1. RAPTIVA [Suspect]
     Indication: PSORIASIS
     Dosage: SUBCUTANEOUS
     Route: 058
     Dates: start: 20060101, end: 20060905
  2. METHOTREXATE [Suspect]
     Indication: PSORIASIS
     Dosage: 1.785 MG, 1/WEEK, ORAL
     Route: 048
     Dates: start: 20060501, end: 20060905
  3. AMARYL [Concomitant]
  4. AVANDIA [Concomitant]
  5. SIMVASTATIN [Concomitant]
  6. ENALAPRIL MALEATE [Concomitant]
  7. FOLIC ACID [Concomitant]

REACTIONS (3)
  - PNEUMONITIS [None]
  - PULMONARY FIBROSIS [None]
  - PULMONARY GRANULOMA [None]
